FAERS Safety Report 6109058-5 (Version None)
Quarter: 2009Q1

REPORT INFORMATION
  Report Type: 
  Country: None (occurrence: None)
  Receive Date: 20090306
  Receipt Date: 20090223
  Transmission Date: 20090719
  Serious: Yes (Hospitalization)
  Sender: FDA-Public Use
  Company Number: 2008AL005289

PATIENT
  Age: 60 Year
  Sex: Female
  Weight: 61.2356 kg

DRUGS (17)
  1. DIGOXIN [Suspect]
     Indication: CARDIAC FAILURE CONGESTIVE
     Dosage: 0.25MG, DAILY, PO
     Route: 048
     Dates: start: 20070101, end: 20080101
  2. GLUCOVANCE [Concomitant]
  3. ACTOS [Suspect]
  4. PREVACID [Concomitant]
  5. ISORDIL [Concomitant]
  6. METFORMIN HCL [Concomitant]
  7. POTASSIUM CHLORIDE [Concomitant]
  8. ADVAIR HFA [Concomitant]
  9. XOPENEX [Concomitant]
  10. SPIRIVA [Concomitant]
  11. COREG [Concomitant]
  12. LIPITOR [Concomitant]
  13. ASPIRIN [Concomitant]
  14. KLOR-CON [Concomitant]
  15. ALDACTONE [Concomitant]
  16. COUMADIN [Concomitant]
  17. MAGNESIUM SULFATE [Concomitant]

REACTIONS (17)
  - AORTIC STENOSIS [None]
  - ASTHENIA [None]
  - ATRIOVENTRICULAR BLOCK FIRST DEGREE [None]
  - CARDIAC FAILURE CONGESTIVE [None]
  - CARDIOMEGALY [None]
  - DYSPNOEA EXERTIONAL [None]
  - ELECTROCARDIOGRAM POOR R-WAVE PROGRESSION [None]
  - ELECTROCARDIOGRAM T WAVE AMPLITUDE DECREASED [None]
  - FATIGUE [None]
  - FLUID RETENTION [None]
  - HYPERGLYCAEMIA [None]
  - HYPONATRAEMIA [None]
  - MITRAL VALVE INCOMPETENCE [None]
  - QRS AXIS ABNORMAL [None]
  - RESPIRATORY DISTRESS [None]
  - VENTRICULAR EXTRASYSTOLES [None]
  - VENTRICULAR TACHYCARDIA [None]
